FAERS Safety Report 23333723 (Version 2)
Quarter: 2023Q4

REPORT INFORMATION
  Report Type: Spontaneous
  Country: TR (occurrence: TR)
  Receive Date: 20231223
  Receipt Date: 20231226
  Transmission Date: 20240110
  Serious: Yes (Hospitalization)
  Sender: FDA-Public Use
  Company Number: TR-ABBVIE-5552220

PATIENT
  Age: 44 Year
  Sex: Female

DRUGS (4)
  1. BOTULINUM TOXIN TYPE A [Suspect]
     Active Substance: BOTULINUM TOXIN TYPE A
     Indication: Hyperhidrosis
     Dosage: TIME INTERVAL: AS NECESSARY
     Route: 065
     Dates: start: 20231130, end: 20231130
  2. BOTULINUM TOXIN TYPE A [Suspect]
     Active Substance: BOTULINUM TOXIN TYPE A
     Indication: Hyperhidrosis
     Dosage: TIME INTERVAL: AS NECESSARY
     Route: 065
     Dates: start: 20231130, end: 20231130
  3. BOTULINUM TOXIN TYPE A [Suspect]
     Active Substance: BOTULINUM TOXIN TYPE A
     Indication: Hyperhidrosis
     Dosage: TIME INTERVAL: AS NECESSARY
     Route: 065
     Dates: start: 20231130, end: 20231130
  4. BOTULINUM TOXIN TYPE A [Suspect]
     Active Substance: BOTULINUM TOXIN TYPE A
     Indication: Hyperhidrosis
     Dosage: TIME INTERVAL: AS NECESSARY: FOR HYPERHIRDOSIS
     Route: 065
     Dates: start: 20231130, end: 20231130

REACTIONS (11)
  - Myopathy [Recovering/Resolving]
  - Diarrhoea [Recovering/Resolving]
  - Feeding disorder [Recovering/Resolving]
  - Muscular weakness [Recovering/Resolving]
  - Spinal disorder [Recovering/Resolving]
  - Dysphonia [Recovering/Resolving]
  - Posture abnormal [Recovering/Resolving]
  - Brow ptosis [Recovering/Resolving]
  - Botulism [Recovering/Resolving]
  - Muscular weakness [Recovering/Resolving]
  - Off label use [Recovered/Resolved]

NARRATIVE: CASE EVENT DATE: 20230101
